FAERS Safety Report 8451839-7 (Version None)
Quarter: 2012Q2

REPORT INFORMATION
  Report Type: 
  Country: None (occurrence: None)
  Receive Date: 20120620
  Receipt Date: 20120321
  Transmission Date: 20120825
  Serious: No
  Sender: FDA-Public Use
  Company Number: US-VERTEX PHARMACEUTICALS INC.-AE-2012-004072

PATIENT
  Sex: Male
  Weight: 95.794 kg

DRUGS (10)
  1. GLYBURIDE [Concomitant]
  2. METHADONE HCL [Concomitant]
  3. METFORMIN HCL [Concomitant]
  4. FERROUS SULFATE TAB [Concomitant]
  5. RIBAVIRIN [Concomitant]
     Indication: HEPATITIS C
     Route: 048
     Dates: start: 20110101
  6. INCIVEK [Suspect]
     Indication: HEPATITIS C
     Route: 048
     Dates: start: 20110101, end: 20120201
  7. PEGASYS [Concomitant]
     Indication: HEPATITIS C
     Route: 058
     Dates: start: 20110101
  8. PRILOSEC [Concomitant]
  9. LISINOPRIL AND HYDROCHLOROTHIAZIDE [Concomitant]
  10. IBUPROFEN [Concomitant]

REACTIONS (1)
  - TRANSFUSION [None]
